FAERS Safety Report 5840081-1 (Version None)
Quarter: 2008Q3

REPORT INFORMATION
  Report Type: 
  Country: None (occurrence: None)
  Receive Date: 20080811
  Receipt Date: 20080801
  Transmission Date: 20090109
  Serious: Yes (Other)
  Sender: FDA-Public Use
  Company Number: A0741840A

PATIENT
  Age: 67 Year
  Sex: Male

DRUGS (10)
  1. COREG [Suspect]
     Indication: DRUG USE FOR UNKNOWN INDICATION
     Dosage: 12.5MG TWICE PER DAY
     Route: 048
  2. BEVACIZUMAB [Suspect]
     Indication: NON-SMALL CELL LUNG CANCER
     Dosage: 1500MG SINGLE DOSE
     Route: 042
     Dates: start: 20080408, end: 20080408
  3. CARBOPLATIN + PACLITAXEL [Concomitant]
     Indication: DRUG USE FOR UNKNOWN INDICATION
     Route: 065
  4. LIPITOR [Concomitant]
  5. METFORMIN HCL [Concomitant]
  6. PLAVIX [Concomitant]
  7. UNSPECIFIED MEDICATION [Concomitant]
  8. ZOMETA [Concomitant]
  9. NEULASTA [Concomitant]
  10. PROCRIT [Concomitant]

REACTIONS (6)
  - BLOOD POTASSIUM DECREASED [None]
  - DYSPHAGIA [None]
  - NEUTROPENIA [None]
  - OESOPHAGEAL CANDIDIASIS [None]
  - PAIN [None]
  - TRACHEO-OESOPHAGEAL FISTULA [None]
